FAERS Safety Report 9736710 (Version 1)
Quarter: 2013Q4

REPORT INFORMATION
  Report Type: Spontaneous
  Country: US (occurrence: US)
  Receive Date: 20131206
  Receipt Date: 20131206
  Transmission Date: 20140711
  Serious: No
  Sender: FDA-Public Use
  Company Number: US-GILEAD-2009-0023941

PATIENT
  Sex: Male
  Weight: 84.37 kg

DRUGS (9)
  1. LETAIRIS [Suspect]
     Indication: PULMONARY ARTERIAL HYPERTENSION
     Route: 048
     Dates: start: 20090223
  2. ADVAIR [Concomitant]
  3. SPIRIVA [Concomitant]
  4. XOPENEX [Concomitant]
  5. METOPROLOL [Concomitant]
  6. PREDNISONE [Concomitant]
  7. ERYTHROMYCIN [Concomitant]
  8. ZETIA [Concomitant]
  9. BUPROPION [Concomitant]

REACTIONS (1)
  - Constipation [Unknown]
